FAERS Safety Report 25238814 (Version 2)
Quarter: 2025Q2

REPORT INFORMATION
  Report Type: Spontaneous
  Country: CN (occurrence: CN)
  Receive Date: 20250425
  Receipt Date: 20250513
  Transmission Date: 20250717
  Serious: Yes (Other)
  Sender: CSL BEHRING
  Company Number: CN-BEH-2025202690

PATIENT
  Age: 89 Year
  Sex: Female
  Weight: 52 kg

DRUGS (1)
  1. ALBURX [Suspect]
     Active Substance: ALBUMIN HUMAN
     Indication: Hypoproteinaemia
     Dosage: 10 G, QD
     Route: 041
     Dates: start: 20250415, end: 20250415

REACTIONS (2)
  - Chest discomfort [Recovering/Resolving]
  - Asthenia [Recovering/Resolving]

NARRATIVE: CASE EVENT DATE: 20250415
